FAERS Safety Report 8133758-9 (Version None)
Quarter: 2012Q1

REPORT INFORMATION
  Report Type: 
  Country: None (occurrence: None)
  Receive Date: 20120213
  Receipt Date: 20120213
  Transmission Date: 20120608
  Serious: No
  Sender: FDA-Public Use
  Company Number: None

PATIENT
  Age: 66 Year
  Sex: Female
  Weight: 75.296 kg

DRUGS (1)
  1. SAVELLA [Suspect]
     Indication: FIBROMYALGIA
     Dosage: STARTER PK ON 25MG
     Route: 048
     Dates: start: 20120130, end: 20120203

REACTIONS (4)
  - EPISTAXIS [None]
  - HEADACHE [None]
  - DIZZINESS [None]
  - MIGRAINE [None]
